FAERS Safety Report 17370812 (Version 2)
Quarter: 2020Q1

REPORT INFORMATION
  Report Type: Spontaneous
  Country: HR (occurrence: HR)
  Receive Date: 20200205
  Receipt Date: 20200210
  Transmission Date: 20200409
  Serious: Yes (Other)
  Sender: FDA-Public Use
  Company Number: HR-PFIZER INC-2020049168

PATIENT
  Age: 69 Year
  Sex: Male
  Weight: 111 kg

DRUGS (9)
  1. BISOPROLOL/BISOPROLOL FUMARATE [Suspect]
     Active Substance: BISOPROLOL FUMARATE
     Dosage: 5 DF, UNK
  2. IBUPROFEN. [Suspect]
     Active Substance: IBUPROFEN
     Dosage: 600 MILLIGRAM
     Route: 065
  3. APIXABAN [Suspect]
     Active Substance: APIXABAN
     Dosage: 5 DF, UNK
  4. BISOPROLOL/BISOPROLOL FUMARATE [Suspect]
     Active Substance: BISOPROLOL FUMARATE
     Dosage: 5 ABSENT
     Route: 065
  5. PERINDOPRIL INDAPAMID [Suspect]
     Active Substance: INDAPAMIDE\PERINDOPRIL
     Dosage: 10/ 2.5 UNITS NOS
  6. IBUPROFEN. [Suspect]
     Active Substance: IBUPROFEN
     Dosage: 600 MG, UNK
  7. ATORVASTATIN CALCIUM. [Suspect]
     Active Substance: ATORVASTATIN CALCIUM
     Dosage: 40 MG, UNK
  8. ATORVASTATIN CALCIUM. [Suspect]
     Active Substance: ATORVASTATIN CALCIUM
     Dosage: 20 DF, UNK
  9. TRAMADOL + PARACETAMOL [Suspect]
     Active Substance: ACETAMINOPHEN\TRAMADOL
     Dosage: UNK

REACTIONS (6)
  - Mitral valve incompetence [Unknown]
  - Coronary artery disease [Unknown]
  - Malaise [Unknown]
  - Left atrial dilatation [Unknown]
  - Chest discomfort [Unknown]
  - Coronary artery occlusion [Unknown]
